FAERS Safety Report 25621023 (Version 1)
Quarter: 2025Q3

REPORT INFORMATION
  Report Type: Spontaneous
  Country: AU (occurrence: AU)
  Receive Date: 20250730
  Receipt Date: 20250730
  Transmission Date: 20251020
  Serious: Yes (Hospitalization)
  Sender: AAVIS PHARMACEUTICALS
  Company Number: AU-AVS-000160

PATIENT
  Age: 11 Year
  Sex: Female

DRUGS (2)
  1. RISPERIDONE [Suspect]
     Active Substance: RISPERIDONE
     Indication: Anorexia nervosa
     Route: 048
  2. RISPERIDONE [Suspect]
     Active Substance: RISPERIDONE
     Indication: Anorexia nervosa
     Dosage: LONG-ACTING INJECTION
     Route: 030
     Dates: start: 20240720, end: 20241112

REACTIONS (2)
  - Treatment noncompliance [Unknown]
  - Drug effective for unapproved indication [Unknown]
